FAERS Safety Report 10400906 (Version 2)
Quarter: 2014Q3

REPORT INFORMATION
  Report Type: Report from Study
  Country: US (occurrence: US)
  Receive Date: 20140821
  Receipt Date: 20140821
  Transmission Date: 20150326
  Serious: Yes (Hospitalization)
  Sender: FDA-Public Use
  Company Number: US-ACTELION-A-NJ2013-79258

PATIENT
  Age: 67 Year
  Sex: Male

DRUGS (3)
  1. SILDENAFIL [Concomitant]
     Active Substance: SILDENAFIL
  2. VELETRI [Suspect]
     Active Substance: EPOPROSTENOL
     Indication: PULMONARY ARTERIAL HYPERTENSION
     Dosage: 9 NG/KG, PER MIN
     Route: 041
     Dates: start: 20130122
  3. TRACLEER [Suspect]
     Active Substance: BOSENTAN\BOSENTAN MONOHYDRATE
     Indication: PULMONARY ARTERIAL HYPERTENSION
     Dosage: UNK
     Route: 048

REACTIONS (9)
  - Platelet count decreased [Unknown]
  - Pain in jaw [Unknown]
  - Constipation [Unknown]
  - Diarrhoea [Unknown]
  - Contusion [Unknown]
  - No therapeutic response [Unknown]
  - Headache [Unknown]
  - Fluid retention [Unknown]
  - Flatulence [Unknown]
